FAERS Safety Report 10029126 (Version 1)
Quarter: 2014Q1

REPORT INFORMATION
  Report Type: Spontaneous
  Country: US (occurrence: US)
  Receive Date: 20140321
  Receipt Date: 20140321
  Transmission Date: 20141002
  Serious: Yes (Other)
  Sender: FDA-Public Use
  Company Number: PHEH2014US005414

PATIENT
  Sex: Male

DRUGS (3)
  1. EXFORGE [Suspect]
     Dosage: 1 DF (VALS 320 MG AND AMLO 5 MG), UNK
     Dates: start: 20140310, end: 20140310
  2. EXFORGE [Suspect]
     Dosage: 1 DF (160 MG VALS AND 10 MG AMLO), UNK
     Dates: start: 20140311
  3. TRAMADOL [Suspect]
     Indication: PAIN
     Dosage: UNK UKN, UNK

REACTIONS (10)
  - Diabetes mellitus [Unknown]
  - Tooth abscess [Unknown]
  - Hypercholesterolaemia [Unknown]
  - Blood pressure decreased [Unknown]
  - Abdominal pain upper [Unknown]
  - Malaise [Unknown]
  - Hyperhidrosis [Unknown]
  - Diarrhoea [Unknown]
  - Defaecation urgency [Unknown]
  - Expired drug administered [Unknown]
